FAERS Safety Report 9710961 (Version 1)
Quarter: 2013Q4

REPORT INFORMATION
  Report Type: Spontaneous
  Country: US (occurrence: US)
  Receive Date: 20131126
  Receipt Date: 20131126
  Transmission Date: 20140711
  Serious: Yes (Hospitalization)
  Sender: FDA-Public Use
  Company Number: US-BRISTOL-MYERS SQUIBB COMPANY-19074632

PATIENT
  Age: 62 Year
  Sex: Male
  Weight: 97.05 kg

DRUGS (10)
  1. BYDUREON 2MG SUSPENSION [Suspect]
     Indication: TYPE 2 DIABETES MELLITUS
     Dosage: LAST DOSE-APR13
     Route: 058
     Dates: start: 20120529
  2. BYETTA [Suspect]
  3. LANTUS [Concomitant]
     Dosage: 1DF=40UNITS
  4. NOVOLOG [Concomitant]
     Indication: BLOOD GLUCOSE INCREASED
     Dosage: 1DF=10UNITS AT BREAKFAST AND LUNCH;?23UNITS:DINNER?5UNITS PRN BLOOD SUGAR OVER 230MG/DL,
  5. VITAMIN D [Concomitant]
     Dosage: 1DF=50,000 UNITS NOS
  6. MULTIVITAMINS + IRON [Concomitant]
  7. ASPIRIN [Concomitant]
  8. ATORVASTATIN [Concomitant]
  9. THYROXINE [Concomitant]
  10. CALCITRIOL [Concomitant]

REACTIONS (1)
  - Renal impairment [Unknown]
